FAERS Safety Report 4561937-6 (Version None)
Quarter: 2005Q1

REPORT INFORMATION
  Report Type: 
  Country: None (occurrence: None)
  Receive Date: 20050126
  Receipt Date: 20050105
  Transmission Date: 20050727
  Serious: Yes (Hospitalization)
  Sender: FDA-Public Use
  Company Number: JP-MERCK-0501USA00454

PATIENT
  Age: 68 Year
  Sex: Female

DRUGS (3)
  1. PRIMAXIN [Suspect]
     Route: 030
  2. PHENYTOIN SODIUM [Suspect]
     Route: 042
  3. SYMMETREL [Concomitant]
     Route: 048

REACTIONS (4)
  - MEDICATION ERROR [None]
  - OVERDOSE [None]
  - PARTIAL SEIZURES [None]
  - RESPIRATORY DEPRESSION [None]
